FAERS Safety Report 18348524 (Version 1)
Quarter: 2020Q4

REPORT INFORMATION
  Report Type: Spontaneous
  Country: US (occurrence: US)
  Receive Date: 20201005
  Receipt Date: 20201005
  Transmission Date: 20210114
  Serious: Yes (Hospitalization)
  Sender: FDA-Public Use
  Company Number: None

PATIENT
  Age: 43 Year
  Sex: Female

DRUGS (1)
  1. ORENCIA [Suspect]
     Active Substance: ABATACEPT
     Indication: HYPOTHYROIDISM
     Route: 058
     Dates: start: 20181102

REACTIONS (3)
  - Hypothyroidism [None]
  - Therapy interrupted [None]
  - Peripheral swelling [None]

NARRATIVE: CASE EVENT DATE: 20200924
